FAERS Safety Report 22288366 (Version 2)
Quarter: 2025Q1

REPORT INFORMATION
  Report Type: Spontaneous
  Country: ES (occurrence: ES)
  Receive Date: 20230505
  Receipt Date: 20250107
  Transmission Date: 20250409
  Serious: Yes (Hospitalization)
  Sender: MYLAN
  Company Number: ES-MYLANLABS-2023M1047186

PATIENT
  Age: 25 Year
  Sex: Female

DRUGS (1)
  1. ACETAMINOPHEN [Suspect]
     Active Substance: ACETAMINOPHEN
     Indication: Back pain
     Dosage: 1 GRAM, Q8H, (RECEIVED A TOTAL OF 5 PILLS)
     Route: 048

REACTIONS (5)
  - Tubulointerstitial nephritis [Recovering/Resolving]
  - Acute kidney injury [Recovering/Resolving]
  - Acidosis hyperchloraemic [Recovering/Resolving]
  - Nephrocalcinosis [Recovering/Resolving]
  - Renal tubular necrosis [Recovering/Resolving]
